FAERS Safety Report 4748420-X (Version None)
Quarter: 2005Q3

REPORT INFORMATION
  Report Type: 
  Country: None (occurrence: None)
  Receive Date: 20050818
  Receipt Date: 20050801
  Transmission Date: 20060218
  Serious: Yes (Hospitalization)
  Sender: FDA-Public Use
  Company Number: DSA_26760_2005

PATIENT
  Age: 79 Year
  Sex: Female

DRUGS (1)
  1. LORAZEPAM [Suspect]
     Dosage: 80 MG ONCE PO
     Route: 048
     Dates: start: 20050709, end: 20050708

REACTIONS (4)
  - BLOOD PRESSURE INCREASED [None]
  - INTENTIONAL MISUSE [None]
  - OVERDOSE [None]
  - SOPOR [None]
